FAERS Safety Report 19641867 (Version 2)
Quarter: 2021Q3

REPORT INFORMATION
  Report Type: Spontaneous
  Country: JP (occurrence: JP)
  Receive Date: 20210731
  Receipt Date: 20210824
  Transmission Date: 20211014
  Serious: No
  Sender: FDA-Public Use
  Company Number: JP-MACLEODS PHARMACEUTICALS US LTD-MAC2021032012

PATIENT

DRUGS (3)
  1. MEMANTINE. [Suspect]
     Active Substance: MEMANTINE
     Indication: DEMENTIA ALZHEIMER^S TYPE
     Dosage: 20 MILLIGRAM
     Route: 065
  2. PEROSPIRONE [Concomitant]
     Active Substance: PEROSPIRONE
     Indication: DEMENTIA ALZHEIMER^S TYPE
     Dosage: 4 MILLIGRAM
     Route: 065
  3. OLANZAPINE. [Suspect]
     Active Substance: OLANZAPINE
     Indication: DEMENTIA ALZHEIMER^S TYPE
     Dosage: 1.25 MILLIGRAM
     Route: 065

REACTIONS (1)
  - Sedation complication [Unknown]
